FAERS Safety Report 5341154-2 (Version None)
Quarter: 2007Q2

REPORT INFORMATION
  Report Type: 
  Country: None (occurrence: None)
  Receive Date: 20070404
  Receipt Date: 20061208
  Transmission Date: 20071010
  Serious: No
  Sender: FDA-Public Use
  Company Number: US200612001474

PATIENT
  Age: 75 Year
  Sex: Male

DRUGS (10)
  1. ALIMTA [Suspect]
     Indication: MESOTHELIOMA
     Dosage: INTRAVENOUS
     Route: 042
  2. CISPLATIN [Concomitant]
  3. FOLIC ACID [Concomitant]
  4. VITAMIN B12 FOR INJECTION (CYANOCOBALAMIN) [Concomitant]
  5. EMEND /USA/ (APREPITANT) [Concomitant]
  6. MAGNESIUM (MAGNESIUM) [Concomitant]
  7. DECADRON [Concomitant]
  8. PALONOSETRON (PALONOSETRON) [Concomitant]
  9. MANNITOL [Concomitant]
  10. POTASSIUM CHLORIDE W/SODIUM CHLORIDE (POTASSIUM CHLORIDE, SODIUM CHLOR [Concomitant]

REACTIONS (3)
  - ANOREXIA [None]
  - DYSGEUSIA [None]
  - PAROSMIA [None]
